FAERS Safety Report 8836846 (Version 1)
Quarter: 2012Q4

REPORT INFORMATION
  Report Type: 
  Country: AT (occurrence: AT)
  Receive Date: 20121012
  Receipt Date: 20121012
  Transmission Date: 20130627
  Serious: Yes (Other)
  Sender: FDA-Public Use
  Company Number: AT-PFIZER INC-2012251523

PATIENT
  Age: 58 Year
  Sex: Female

DRUGS (1)
  1. XANOR [Suspect]
     Dosage: 0.25 mg, 3x/day
     Route: 048

REACTIONS (4)
  - Parkinson^s disease [Unknown]
  - Movement disorder [Unknown]
  - Muscle spasms [Unknown]
  - Abdominal pain upper [Unknown]
